FAERS Safety Report 13773002 (Version 2)
Quarter: 2017Q3

REPORT INFORMATION
  Report Type: Spontaneous
  Country: US (occurrence: US)
  Receive Date: 20170720
  Receipt Date: 20170803
  Transmission Date: 20171127
  Serious: Yes (Death, Life-Threatening, Other)
  Sender: FDA-Public Use
  Company Number: US-PFIZER INC-2017313102

PATIENT
  Age: 65 Year
  Sex: Male

DRUGS (4)
  1. CYCLOPHOSPHAMIDE. [Concomitant]
     Active Substance: CYCLOPHOSPHAMIDE
     Indication: MYELOID LEUKAEMIA
     Dosage: UNK
  2. DEXTRAN [Suspect]
     Active Substance: DEXTRAN
     Indication: STEM CELL TRANSPLANT
     Dosage: UNK (ALBUMIN/DEXTRAN 1:1)
     Route: 042
     Dates: start: 20090423
  3. FLUDARABINE [Concomitant]
     Active Substance: FLUDARABINE PHOSPHATE
     Indication: MYELOID LEUKAEMIA
     Dosage: UNK
  4. ALBUMIN [Suspect]
     Active Substance: ALBUMIN HUMAN
     Indication: STEM CELL TRANSPLANT
     Dosage: UNK (ALBUMIN/DEXTRAN 1:1)
     Dates: start: 20090423

REACTIONS (11)
  - Confusional state [Recovered/Resolved]
  - Chest pain [Unknown]
  - Lethargy [Recovered/Resolved]
  - Pulmonary oedema [Unknown]
  - Dyspnoea [Recovered/Resolved]
  - Haematuria [Unknown]
  - Cardiac failure [Fatal]
  - Hypoxia [Unknown]
  - Acute kidney injury [Unknown]
  - Respiratory failure [Recovered/Resolved]
  - Cardiomyopathy [Unknown]

NARRATIVE: CASE EVENT DATE: 2009
